FAERS Safety Report 25135291 (Version 2)
Quarter: 2025Q3

REPORT INFORMATION
  Report Type: Spontaneous
  Country: US (occurrence: US)
  Receive Date: 20250328
  Receipt Date: 20250917
  Transmission Date: 20251020
  Serious: No
  Sender: SANOFI AVENTIS
  Company Number: US-SA-2025SA089296

PATIENT
  Age: 65 Year
  Sex: Female

DRUGS (32)
  1. DUPIXENT [Suspect]
     Active Substance: DUPILUMAB
     Indication: Asthma
     Route: 058
     Dates: start: 20250313, end: 20250313
  2. DUPIXENT [Suspect]
     Active Substance: DUPILUMAB
     Dosage: 300 MG, QOW
     Route: 058
     Dates: start: 202503
  3. ALBUTEROL SULFATE [Concomitant]
     Active Substance: ALBUTEROL SULFATE
  4. BETAMETHASONE DIPROPIONATE [Concomitant]
     Active Substance: BETAMETHASONE DIPROPIONATE
  5. CELECOXIB [Concomitant]
     Active Substance: CELECOXIB
  6. CITALOPRAM [Concomitant]
     Active Substance: CITALOPRAM
  7. LORATADINE [Concomitant]
     Active Substance: LORATADINE
  8. CLOBETASOL [Concomitant]
     Active Substance: CLOBETASOL
  9. CLOBETASOL [Concomitant]
     Active Substance: CLOBETASOL
  10. DICLOFENAC [Concomitant]
     Active Substance: DICLOFENAC
  11. DOXEPIN HYDROCHLORIDE [Concomitant]
     Active Substance: DOXEPIN HYDROCHLORIDE
  12. EPINEPHRINE [Concomitant]
     Active Substance: EPINEPHRINE
  13. EPINEPHRINE [Concomitant]
     Active Substance: EPINEPHRINE
  14. ESTRADIOL [Concomitant]
     Active Substance: ESTRADIOL
  15. FAMOTIDINE [Concomitant]
     Active Substance: FAMOTIDINE
  16. HYDROXYZINE PAMOATE [Concomitant]
     Active Substance: HYDROXYZINE PAMOATE
  17. LEVOTHYROXINE [Concomitant]
     Active Substance: LEVOTHYROXINE
  18. MELOXICAM [Concomitant]
     Active Substance: MELOXICAM
  19. NAPROXEN [Concomitant]
     Active Substance: NAPROXEN
  20. OLOPATADINE [Concomitant]
     Active Substance: OLOPATADINE
  21. OZEMPIC [Concomitant]
     Active Substance: SEMAGLUTIDE
  22. PANTOPRAZOLE [Concomitant]
     Active Substance: PANTOPRAZOLE
  23. PRAMIPEXOLE [Concomitant]
     Active Substance: PRAMIPEXOLE
  24. PREMARIN [Concomitant]
     Active Substance: ESTROGENS, CONJUGATED
  25. SYNVISC [Concomitant]
     Active Substance: HYLAN G-F 20
  26. SYSTANE (HYPROMELLOSE 2910 (4000 MPA.S)) [Concomitant]
     Active Substance: HYPROMELLOSE 2910 (4000 MPA.S)
  27. TIZANIDINE [Concomitant]
     Active Substance: TIZANIDINE
  28. TOPAMAX [Concomitant]
     Active Substance: TOPIRAMATE
  29. TRIAMCINOLONE [Concomitant]
     Active Substance: TRIAMCINOLONE
  30. HYDROCHLOROTHIAZIDE\TRIAMTERENE [Concomitant]
     Active Substance: HYDROCHLOROTHIAZIDE\TRIAMTERENE
  31. ZYRTEC [Concomitant]
     Active Substance: CETIRIZINE HYDROCHLORIDE
  32. BENADRYL ALLERGY [Concomitant]
     Active Substance: DIPHENHYDRAMINE HYDROCHLORIDE

REACTIONS (5)
  - Discomfort [Unknown]
  - Sleep disorder due to a general medical condition [Unknown]
  - Asthma [Unknown]
  - Rash [Unknown]
  - Drug ineffective [Unknown]

NARRATIVE: CASE EVENT DATE: 20250101
